FAERS Safety Report 5256729-9 (Version None)
Quarter: 2007Q1

REPORT INFORMATION
  Report Type: 
  Country: None (occurrence: None)
  Receive Date: 20070306
  Receipt Date: 20070222
  Transmission Date: 20070707
  Serious: Yes (Other)
  Sender: FDA-Public Use
  Company Number: US-PFIZER INC-2007014667

PATIENT
  Age: 17 Year
  Sex: Female

DRUGS (1)
  1. SERTRALINE [Suspect]
     Indication: MAJOR DEPRESSION
     Dosage: TEXT:25-200 MG

REACTIONS (3)
  - DRUG INEFFECTIVE [None]
  - FEELING JITTERY [None]
  - IRRITABILITY [None]
